FAERS Safety Report 10327499 (Version 2)
Quarter: 2014Q3

REPORT INFORMATION
  Report Type: Spontaneous
  Country: IT (occurrence: IT)
  Receive Date: 20140721
  Receipt Date: 20140728
  Transmission Date: 20150326
  Serious: Yes (Other)
  Sender: FDA-Public Use
  Company Number: IT-ACCORD-024877

PATIENT
  Age: 70 Year
  Sex: Female
  Weight: 61 kg

DRUGS (4)
  1. GEMCITABINE/GEMCITABINE HYDROCHLORIDE [Suspect]
     Active Substance: GEMCITABINE\GEMCITABINE HYDROCHLORIDE
     Indication: PANCREATIC CARCINOMA METASTATIC
     Route: 042
     Dates: start: 20131202
  2. NEO-LOTAN [Concomitant]
     Active Substance: LOSARTAN POTASSIUM
  3. NOVORAPID [Concomitant]
     Active Substance: INSULIN ASPART
  4. ABRAXANE [Suspect]
     Active Substance: PACLITAXEL
     Indication: PANCREATIC CARCINOMA METASTATIC
     Dosage: THERAPY DURATION:02-DEC-2013 TO 12-MAY-2014
     Route: 042
     Dates: start: 20131202

REACTIONS (5)
  - Neutropenia [Recovering/Resolving]
  - Alopecia [Not Recovered/Not Resolved]
  - Leukopenia [Recovering/Resolving]
  - Pyrexia [Recovering/Resolving]
  - Anaemia [Recovering/Resolving]

NARRATIVE: CASE EVENT DATE: 20140120
